FAERS Safety Report 7948933-3 (Version None)
Quarter: 2011Q4

REPORT INFORMATION
  Report Type: 
  Country: None (occurrence: None)
  Receive Date: 20111130
  Receipt Date: 20111116
  Transmission Date: 20120403
  Serious: Yes (Hospitalization, Other)
  Sender: FDA-Public Use
  Company Number: PHHY2011IT100940

PATIENT
  Age: 58 Year
  Sex: Male

DRUGS (1)
  1. CYCLOSPORINE [Suspect]
     Indication: LIVER TRANSPLANT

REACTIONS (14)
  - TOXICITY TO VARIOUS AGENTS [None]
  - MUSCULOSKELETAL PAIN [None]
  - DYSPNOEA [None]
  - DIAPHRAGM MUSCLE WEAKNESS [None]
  - HIATUS HERNIA [None]
  - PYREXIA [None]
  - INCISIONAL HERNIA [None]
  - PNEUMONIA [None]
  - ABDOMINAL PAIN [None]
  - CHEST PAIN [None]
  - NEPHROPATHY TOXIC [None]
  - DIAPHRAGMATIC RUPTURE [None]
  - VOMITING [None]
  - RETCHING [None]
